FAERS Safety Report 8935331 (Version 1)
Quarter: 2012Q4

REPORT INFORMATION
  Report Type: 
  Country: US (occurrence: US)
  Receive Date: 20121129
  Receipt Date: 20121129
  Transmission Date: 20130627
  Serious: Yes (Other)
  Sender: FDA-Public Use
  Company Number: US-PFIZER INC-2012298078

PATIENT
  Age: 12 Year
  Sex: Male

DRUGS (1)
  1. GEODON [Suspect]
     Dosage: UNK
     Dates: start: 201209, end: 2012

REACTIONS (3)
  - Sedation [Unknown]
  - Panic attack [Unknown]
  - Anxiety [Unknown]
